FAERS Safety Report 5726007-X (Version None)
Quarter: 2008Q2

REPORT INFORMATION
  Report Type: 
  Country: None (occurrence: None)
  Receive Date: 20080502
  Receipt Date: 20080422
  Transmission Date: 20081010
  Serious: Yes (Other)
  Sender: FDA-Public Use
  Company Number: HQWYE613801FEB06

PATIENT
  Sex: Female

DRUGS (4)
  1. CONJUGATED ESTROGENS [Suspect]
  2. PROVERA [Suspect]
  3. MEDROXYPROGESTERONE [Suspect]
  4. CYCRIN [Suspect]

REACTIONS (2)
  - BREAST CANCER [None]
  - BREAST CANCER RECURRENT [None]
